FAERS Safety Report 10043021 (Version 1)
Quarter: 2014Q1

REPORT INFORMATION
  Report Type: Spontaneous
  Country: US (occurrence: US)
  Receive Date: 20140328
  Receipt Date: 20140328
  Transmission Date: 20141002
  Serious: Yes (Hospitalization, Other)
  Sender: FDA-Public Use
  Company Number: US-BIOGENIDEC-2014BI027261

PATIENT
  Age: 27 Year
  Sex: Female

DRUGS (1)
  1. AVONEX [Suspect]
     Indication: MULTIPLE SCLEROSIS
     Route: 030
     Dates: start: 20120711, end: 2013

REACTIONS (8)
  - Cardiac arrest [Recovered/Resolved]
  - Convulsion [Recovered/Resolved]
  - Kidney infection [Recovered/Resolved]
  - Escherichia infection [Recovered/Resolved]
  - Tooth disorder [Not Recovered/Not Resolved]
  - Urinary tract infection [Recovered/Resolved]
  - Multiple sclerosis [Not Recovered/Not Resolved]
  - Influenza like illness [Recovered/Resolved]
